FAERS Safety Report 15264537 (Version 2)
Quarter: 2019Q1

REPORT INFORMATION
  Report Type: Spontaneous
  Country: JP (occurrence: JP)
  Receive Date: 20180810
  Receipt Date: 20190131
  Transmission Date: 20190417
  Serious: Yes (Hospitalization, Other)
  Sender: FDA-Public Use
  Company Number: JP-OTSUKA-2015_009889

PATIENT
  Sex: Male
  Weight: 63 kg

DRUGS (2)
  1. ABILIFY [Suspect]
     Active Substance: ARIPIPRAZOLE
     Indication: ATTENTION DEFICIT/HYPERACTIVITY DISORDER
     Dosage: 3 MG, DAILY DOSE
     Route: 048
     Dates: start: 2011, end: 2012
  2. ABILIFY [Suspect]
     Active Substance: ARIPIPRAZOLE
     Indication: AUTISM SPECTRUM DISORDER
     Dosage: 3MG*10 TABS, ONCE
     Route: 048
     Dates: start: 20150916, end: 20150916

REACTIONS (8)
  - Dystonia [Recovered/Resolved]
  - Hypertonia [Recovered/Resolved]
  - Tetany [Recovered/Resolved]
  - Product administered to patient of inappropriate age [Unknown]
  - Muscle rigidity [Recovered/Resolved]
  - Muscle rigidity [Recovered/Resolved]
  - Overdose [Unknown]
  - Dyskinesia [Recovering/Resolving]
